FAERS Safety Report 9436120 (Version 3)
Quarter: 2013Q4

REPORT INFORMATION
  Report Type: Report from Study
  Country: NZ (occurrence: NZ)
  Receive Date: 20130801
  Receipt Date: 20131015
  Transmission Date: 20140711
  Serious: Yes (Other)
  Sender: FDA-Public Use
  Company Number: NZ-PFIZER INC-2013217299

PATIENT
  Age: 36 Year
  Sex: Female
  Weight: 60.8 kg

DRUGS (1)
  1. TOFACITINIB CITRATE [Suspect]
     Indication: COLITIS ULCERATIVE
     Dosage: 10 MG, 2X/DAY
     Route: 048
     Dates: start: 20130620, end: 20130723

REACTIONS (1)
  - Furuncle [Recovered/Resolved]
